FAERS Safety Report 10418681 (Version 1)
Quarter: 2014Q3

REPORT INFORMATION
  Report Type: Spontaneous
  Country: US (occurrence: US)
  Receive Date: 20140829
  Receipt Date: 20140829
  Transmission Date: 20150326
  Serious: Yes (Other)
  Sender: FDA-Public Use
  Company Number: US-PFIZER INC-2014239177

PATIENT
  Age: 57 Year
  Sex: Female
  Weight: 113.38 kg

DRUGS (3)
  1. LYRICA [Suspect]
     Active Substance: PREGABALIN
     Indication: RESTLESS LEGS SYNDROME
     Dosage: 225 MG, DAILY (75 MG IN THE MORNING AND 150 MG AT NIGHT)
     Route: 048
     Dates: start: 2005
  2. GLYBURIDE. [Concomitant]
     Active Substance: GLYBURIDE
     Indication: DIABETES MELLITUS
     Dosage: 15 MG, DAILY (TWO 5MG IN THE MORNING AND ONE 5MG AT NIGHT)
  3. ACTOS [Concomitant]
     Active Substance: PIOGLITAZONE HYDROCHLORIDE
     Dosage: 45 MG, 1X/DAY

REACTIONS (2)
  - Oesophageal neoplasm [Unknown]
  - Thyroid neoplasm [Unknown]
